FAERS Safety Report 8145125-2 (Version None)
Quarter: 2012Q1

REPORT INFORMATION
  Report Type: 
  Country: None (occurrence: None)
  Receive Date: 20120217
  Receipt Date: 20120214
  Transmission Date: 20120608
  Serious: Yes (Hospitalization, Other)
  Sender: FDA-Public Use
  Company Number: PHEH2011US010405

PATIENT
  Sex: Female

DRUGS (6)
  1. EXJADE [Suspect]
     Dosage: 125 MG, UNK
  2. PANTOPRAZOLE [Concomitant]
     Dosage: 40 MG, UNK
     Route: 048
  3. EXJADE [Suspect]
     Indication: IRON METABOLISM DISORDER
     Dosage: 1250 MG, QD
     Route: 048
     Dates: start: 20090101
  4. EXJADE [Suspect]
     Dosage: 1250 MG, QD
     Route: 048
  5. POTASSIUM CHLORIDE [Concomitant]
     Dosage: 10 MEQ, QD
  6. PROCRIT [Concomitant]

REACTIONS (6)
  - HIP FRACTURE [None]
  - FEMUR FRACTURE [None]
  - LOWER LIMB FRACTURE [None]
  - FALL [None]
  - DIARRHOEA [None]
  - HEARING IMPAIRED [None]
